FAERS Safety Report 21238165 (Version 1)
Quarter: 2022Q3

REPORT INFORMATION
  Report Type: Spontaneous
  Country: US (occurrence: US)
  Receive Date: 20220822
  Receipt Date: 20220822
  Transmission Date: 20221027
  Serious: Yes (Other)
  Sender: FDA-Public Use
  Company Number: US-SA-SAC20220815000779

PATIENT
  Sex: Female
  Weight: 120 kg

DRUGS (8)
  1. KEVZARA [Suspect]
     Active Substance: SARILUMAB
     Indication: Rheumatoid arthritis
     Route: 058
     Dates: start: 202109
  2. ABREVA [Suspect]
     Active Substance: DOCOSANOL
  3. TORSEMIDE [Concomitant]
     Active Substance: TORSEMIDE
     Dosage: 100-100 MG
  4. CALCIUM [Concomitant]
     Active Substance: CALCIUM
     Dosage: 250MG-12.5
  5. MAGNESIUM [Concomitant]
     Active Substance: MAGNESIUM
     Indication: Rheumatoid arthritis
  6. ASPIRIN [Concomitant]
     Active Substance: ASPIRIN
     Dosage: 325MG
  7. .ALPHA.-TOCOPHEROL [Concomitant]
     Active Substance: .ALPHA.-TOCOPHEROL
  8. FLAXSEED [Concomitant]
     Active Substance: FLAX SEED
     Dosage: 1300-670MG

REACTIONS (1)
  - Renal impairment [Unknown]
